FAERS Safety Report 13910109 (Version 1)
Quarter: 2017Q3

REPORT INFORMATION
  Report Type: Spontaneous
  Country: US (occurrence: US)
  Receive Date: 20170828
  Receipt Date: 20170828
  Transmission Date: 20171127
  Serious: Yes (Hospitalization, Other)
  Sender: FDA-Public Use
  Company Number: US-DEPOMED, INC.-US-2017DEP001692

PATIENT

DRUGS (2)
  1. NUCYNTA ER [Suspect]
     Active Substance: TAPENTADOL HYDROCHLORIDE
     Indication: TRANSIENT ISCHAEMIC ATTACK
  2. NUCYNTA ER [Suspect]
     Active Substance: TAPENTADOL HYDROCHLORIDE
     Indication: PAIN
     Dosage: 100 MG, UNK, ON AND OFF OF TWICE A DAY AND ONCE A DAY
     Route: 048
     Dates: start: 2012, end: 201706

REACTIONS (11)
  - Product use in unapproved indication [Recovered/Resolved]
  - Renal failure [Recovered/Resolved]
  - Pneumothorax traumatic [Recovered/Resolved]
  - Rib fracture [Recovered/Resolved]
  - Tendon rupture [Recovered/Resolved]
  - Dementia Alzheimer^s type [Not Recovered/Not Resolved]
  - Head injury [Recovered/Resolved]
  - Fracture [Recovered/Resolved]
  - Road traffic accident [Recovered/Resolved]
  - Cerebrovascular accident [Recovered/Resolved]
  - Hypothermia [Recovered/Resolved]

NARRATIVE: CASE EVENT DATE: 2012
